FAERS Safety Report 8220503-1 (Version None)
Quarter: 2012Q1

REPORT INFORMATION
  Report Type: 
  Country: None (occurrence: None)
  Receive Date: 20120320
  Receipt Date: 20120314
  Transmission Date: 20120608
  Serious: Yes (Death, Other)
  Sender: FDA-Public Use
  Company Number: US-CELGENEUS-163-21880-12022115

PATIENT
  Sex: Female

DRUGS (2)
  1. REVLIMID [Suspect]
     Indication: MULTIPLE MYELOMA
     Dosage: 10 MILLIGRAM
     Route: 048
     Dates: start: 20101209, end: 20110906
  2. AREDIA [Concomitant]
     Indication: MULTIPLE MYELOMA
     Dosage: 90 MILLIGRAM
     Route: 041
     Dates: start: 20100423, end: 20120103

REACTIONS (2)
  - MYELODYSPLASTIC SYNDROME [None]
  - MULTIPLE MYELOMA [None]
